FAERS Safety Report 7959753-8 (Version None)
Quarter: 2011Q4

REPORT INFORMATION
  Report Type: 
  Country: None (occurrence: None)
  Receive Date: 20111206
  Receipt Date: 20111118
  Transmission Date: 20120403
  Serious: Yes (Hospitalization)
  Sender: FDA-Public Use
  Company Number: JP-GLAXOSMITHKLINE-B0764294A

PATIENT
  Sex: Female

DRUGS (4)
  1. LAMICTAL [Suspect]
     Indication: BIPOLAR DISORDER
     Dosage: 25MG PER DAY
     Route: 048
     Dates: start: 20111019, end: 20111103
  2. LITHIUM CARBONATE [Concomitant]
     Dosage: 800MG PER DAY
     Route: 048
  3. SEROQUEL [Concomitant]
     Dosage: 300MG PER DAY
     Route: 048
  4. MAGMITT [Concomitant]
     Route: 048

REACTIONS (17)
  - STEVENS-JOHNSON SYNDROME [None]
  - STOMATITIS [None]
  - BLISTER [None]
  - SCAB [None]
  - DRUG ERUPTION [None]
  - ERYTHEMA MULTIFORME [None]
  - RASH [None]
  - WHITE BLOOD CELL COUNT INCREASED [None]
  - BLOOD CREATINE PHOSPHOKINASE DECREASED [None]
  - EOSINOPHIL COUNT INCREASED [None]
  - LIP EROSION [None]
  - ENANTHEMA [None]
  - SKIN EROSION [None]
  - PYREXIA [None]
  - C-REACTIVE PROTEIN INCREASED [None]
  - FIBRIN D DIMER INCREASED [None]
  - ALANINE AMINOTRANSFERASE INCREASED [None]
